FAERS Safety Report 5229182-9 (Version None)
Quarter: 2007Q1

REPORT INFORMATION
  Report Type: 
  Country: None (occurrence: None)
  Receive Date: 20070205
  Receipt Date: 20070129
  Transmission Date: 20070707
  Serious: Yes (Hospitalization)
  Sender: FDA-Public Use
  Company Number: AU-BOEHRINGER INGELHEIM PHARMACEUTICALS, INC.-2007-BP-01428AU

PATIENT
  Sex: Male
  Weight: 80 kg

DRUGS (3)
  1. MOBIC [Suspect]
     Indication: BACK PAIN
     Route: 048
     Dates: start: 20040701, end: 20040731
  2. FENAC [Suspect]
     Indication: BACK PAIN
     Route: 048
     Dates: start: 20040701, end: 20040731
  3. MOBILIS [Suspect]
     Indication: BACK PAIN
     Route: 048
     Dates: start: 20040701, end: 20040731

REACTIONS (1)
  - SUPRAVENTRICULAR TACHYCARDIA [None]
